FAERS Safety Report 7586000-1 (Version None)
Quarter: 2011Q3

REPORT INFORMATION
  Report Type: 
  Country: None (occurrence: None)
  Receive Date: 20110701
  Receipt Date: 20110406
  Transmission Date: 20111222
  Serious: No
  Sender: FDA-Public Use
  Company Number: US-BAYER-2011-030189

PATIENT
  Sex: Female

DRUGS (1)
  1. MIRENA [Suspect]
     Dosage: 20 ?G/D, CONT
     Route: 015

REACTIONS (6)
  - OLIGOMENORRHOEA [None]
  - CONSTIPATION [None]
  - OVARIAN DISORDER [None]
  - VOMITING [None]
  - PREGNANCY WITH CONTRACEPTIVE DEVICE [None]
  - HYPERHIDROSIS [None]
